FAERS Safety Report 10429293 (Version 1)
Quarter: 2014Q3

REPORT INFORMATION
  Report Type: Spontaneous
  Country: US (occurrence: None)
  Receive Date: 20140902
  Receipt Date: 20140902
  Transmission Date: 20150326
  Serious: Yes (Hospitalization)
  Sender: FDA-Public Use
  Company Number: None

PATIENT
  Age: 71 Year
  Sex: Female

DRUGS (13)
  1. MAGNESIUM SULFATE [Concomitant]
     Active Substance: MAGNESIUM SULFATE
  2. DOCUSATE [Concomitant]
     Active Substance: DOCUSATE
  3. OSTREOTIDE [Concomitant]
  4. ENOXAPARIN [Concomitant]
     Active Substance: ENOXAPARIN
  5. HYDROMORPHONE [Concomitant]
     Active Substance: HYDROMORPHONE
  6. GLIPIZIDE. [Suspect]
     Active Substance: GLIPIZIDE
     Indication: HYPERGLYCAEMIA
     Route: 048
     Dates: end: 20140711
  7. ATORVASTATIN [Concomitant]
     Active Substance: ATORVASTATIN
  8. CALCIUM CARBONATE. [Concomitant]
     Active Substance: CALCIUM CARBONATE
  9. CLOPIDOGREL [Concomitant]
     Active Substance: CLOPIDOGREL BISULFATE
  10. SALMETEROL [Concomitant]
     Active Substance: SALMETEROL
  11. ALBUTEROL. [Concomitant]
     Active Substance: ALBUTEROL
  12. FERROUS SULFATE [Concomitant]
     Active Substance: FERROUS SULFATE\FERROUS SULFATE, DRIED
  13. METOCLOPRAMIDE. [Concomitant]
     Active Substance: METOCLOPRAMIDE

REACTIONS (5)
  - Abdominal pain [None]
  - Drug prescribing error [None]
  - Hypoglycaemia [None]
  - Incorrect dose administered [None]
  - Hypophagia [None]

NARRATIVE: CASE EVENT DATE: 20140711
